FAERS Safety Report 17400672 (Version 1)
Quarter: 2020Q1

REPORT INFORMATION
  Report Type: Spontaneous
  Country: FR (occurrence: FR)
  Receive Date: 20200211
  Receipt Date: 20200211
  Transmission Date: 20200409
  Serious: Yes (Life-Threatening, Hospitalization, Other)
  Sender: FDA-Public Use
  Company Number: FR-AUROBINDO-AUR-APL-2020-006003

PATIENT
  Age: 67 Year
  Sex: Male

DRUGS (9)
  1. OXALIPLATIN CONCENTRATE FOR SOLUTION FOR INFUSION [Suspect]
     Active Substance: OXALIPLATIN
     Indication: METASTASES TO LIVER
  2. OXALIPLATIN CONCENTRATE FOR SOLUTION FOR INFUSION [Suspect]
     Active Substance: OXALIPLATIN
     Indication: METASTASES TO LUNG
  3. FLUOROURACIL. [Concomitant]
     Active Substance: FLUOROURACIL
     Indication: METASTASES TO LIVER
  4. FOLINIC ACID [Concomitant]
     Active Substance: LEUCOVORIN
     Indication: METASTASES TO LUNG
     Dosage: UNK (11 CYCLE)
     Route: 065
  5. FLUOROURACIL. [Concomitant]
     Active Substance: FLUOROURACIL
     Indication: METASTASES TO LUNG
     Dosage: UNK (11 CYCLE)
     Route: 065
  6. FOLINIC ACID [Concomitant]
     Active Substance: LEUCOVORIN
     Indication: METASTASES TO LIVER
  7. FOLINIC ACID [Concomitant]
     Active Substance: LEUCOVORIN
     Indication: COLON CANCER METASTATIC
  8. OXALIPLATIN CONCENTRATE FOR SOLUTION FOR INFUSION [Suspect]
     Active Substance: OXALIPLATIN
     Indication: COLON CANCER METASTATIC
     Dosage: UNK (SUCCESSION OF CHEMOTHERAPIES, INCLUDING OXALIPLATIN) (11 CYCLE)
     Route: 065
  9. FLUOROURACIL. [Concomitant]
     Active Substance: FLUOROURACIL
     Indication: COLON CANCER METASTATIC

REACTIONS (3)
  - Renal tubular necrosis [Recovered/Resolved]
  - Evans syndrome [Recovered/Resolved]
  - Acute kidney injury [Recovered/Resolved]
